FAERS Safety Report 5017153-7 (Version None)
Quarter: 2006Q2

REPORT INFORMATION
  Report Type: 
  Country: None (occurrence: None)
  Receive Date: 20060525
  Receipt Date: 20060503
  Transmission Date: 20061013
  Serious: Yes (Other)
  Sender: FDA-Public Use
  Company Number: US200605001443

PATIENT
  Sex: Female

DRUGS (8)
  1. CYMBALTA [Suspect]
     Indication: DEPRESSION
     Dosage: 60 MG
  2. PROVIGIL (MODANIFIL) [Concomitant]
  3. ESZOPICLONE [Concomitant]
  4. VALTREX [Concomitant]
  5. DETROL - SLOW RELEASE (TOLTERODINE L-TARTRATE) [Concomitant]
  6. TYLOX (OXYCODONE HYDROCHLORIDE, PARACETAMOL) [Concomitant]
  7. KLONOPIN [Concomitant]
  8. ACIPHEX [Concomitant]

REACTIONS (3)
  - ALANINE AMINOTRANSFERASE INCREASED [None]
  - ASPARTATE AMINOTRANSFERASE INCREASED [None]
  - HEPATIC ENZYME INCREASED [None]
